FAERS Safety Report 9857113 (Version 1)
Quarter: 2014Q1

REPORT INFORMATION
  Report Type: Spontaneous
  Country: GB (occurrence: GB)
  Receive Date: 20140130
  Receipt Date: 20140130
  Transmission Date: 20141002
  Serious: Yes (Other)
  Sender: FDA-Public Use
  Company Number: GB-VERTEX PHARMACEUTICALS INC-2014-000477

PATIENT
  Sex: 0

DRUGS (2)
  1. INCIVO [Suspect]
     Indication: HEPATITIS C
     Route: 048
  2. ALL OTHER MEDICATIONS [Concomitant]

REACTIONS (1)
  - Myocardial infarction [Unknown]
